FAERS Safety Report 15497601 (Version 6)
Quarter: 2019Q2

REPORT INFORMATION
  Report Type: Report from Study
  Country: None (occurrence: US)
  Receive Date: 20181015
  Receipt Date: 20190508
  Transmission Date: 20190711
  Serious: Yes (Hospitalization, Other)
  Sender: FDA-Public Use
  Company Number: US-ABBVIE-18K-163-2517911-00

PATIENT
  Age: 67 Year
  Sex: Female
  Weight: 78.09 kg

DRUGS (7)
  1. PREDNISONE. [Suspect]
     Active Substance: PREDNISONE
     Route: 048
     Dates: start: 20180928
  2. HUMIRA [Suspect]
     Active Substance: ADALIMUMAB
     Indication: COLITIS ULCERATIVE
     Route: 058
     Dates: start: 2007, end: 2008
  3. REMICADE [Suspect]
     Active Substance: INFLIXIMAB
     Indication: PRODUCT USED FOR UNKNOWN INDICATION
     Route: 065
  4. HUMIRA [Suspect]
     Active Substance: ADALIMUMAB
     Indication: CROHN^S DISEASE
     Route: 058
     Dates: start: 2015
  5. AMOXICILLIN. [Suspect]
     Active Substance: AMOXICILLIN
     Indication: PHARYNGITIS STREPTOCOCCAL
     Route: 048
     Dates: start: 2017
  6. PREDNISONE. [Suspect]
     Active Substance: PREDNISONE
     Indication: PERICARDITIS
     Route: 048
     Dates: start: 2004, end: 2007
  7. METHOTREXATE. [Suspect]
     Active Substance: METHOTREXATE
     Indication: PRODUCT USED FOR UNKNOWN INDICATION
     Route: 065

REACTIONS (44)
  - Rales [Not Recovered/Not Resolved]
  - Skin ulcer [Unknown]
  - Spleen disorder [Unknown]
  - Fibromyalgia [Not Recovered/Not Resolved]
  - Influenza [Recovered/Resolved]
  - Back pain [Not Recovered/Not Resolved]
  - Spinal fracture [Unknown]
  - Osteoarthritis [Not Recovered/Not Resolved]
  - Nodule [Unknown]
  - Impaired healing [Not Recovered/Not Resolved]
  - Peripheral coldness [Unknown]
  - Arthritis [Unknown]
  - Fall [Not Recovered/Not Resolved]
  - Blood pressure increased [Recovered/Resolved]
  - Joint injury [Unknown]
  - Pericardial effusion [Unknown]
  - Pericarditis [Not Recovered/Not Resolved]
  - Atrial fibrillation [Recovered/Resolved]
  - Anxiety [Recovered/Resolved]
  - Fall [Recovered/Resolved]
  - Pharyngitis streptococcal [Recovered/Resolved]
  - Ear infection [Recovered/Resolved]
  - Colitis ulcerative [Not Recovered/Not Resolved]
  - Colitis ulcerative [Recovered/Resolved]
  - Crohn^s disease [Not Recovered/Not Resolved]
  - Pericarditis [Recovered/Resolved]
  - Atrial fibrillation [Recovered/Resolved]
  - Skin discolouration [Unknown]
  - Heart rate decreased [Recovered/Resolved]
  - Influenza [Recovered/Resolved]
  - Crohn^s disease [Recovered/Resolved]
  - Pulmonary oedema [Unknown]
  - Respiratory disorder [Unknown]
  - Scoliosis [Not Recovered/Not Resolved]
  - Surgical failure [Unknown]
  - Lung disorder [Unknown]
  - Influenza [Unknown]
  - Systemic lupus erythematosus [Not Recovered/Not Resolved]
  - Cardiac failure congestive [Recovered/Resolved]
  - Pleurisy [Recovered/Resolved]
  - Osteoporosis [Not Recovered/Not Resolved]
  - Respiratory tract congestion [Recovered/Resolved]
  - Nervousness [Recovered/Resolved]
  - Arthralgia [Not Recovered/Not Resolved]

NARRATIVE: CASE EVENT DATE: 2007
